FAERS Safety Report 7443113-2 (Version None)
Quarter: 2011Q2

REPORT INFORMATION
  Report Type: 
  Country: None (occurrence: None)
  Receive Date: 20110428
  Receipt Date: 20110422
  Transmission Date: 20111010
  Serious: Yes (Other)
  Sender: FDA-Public Use
  Company Number: US-ABBOTT-11P-163-0721726-00

PATIENT
  Sex: Female

DRUGS (11)
  1. CRESTOR [Concomitant]
     Indication: PRODUCT USED FOR UNKNOWN INDICATION
  2. PROTONIX [Concomitant]
     Indication: PRODUCT USED FOR UNKNOWN INDICATION
  3. FOLIC ACID [Concomitant]
     Indication: PRODUCT USED FOR UNKNOWN INDICATION
  4. METHOTREXATE [Suspect]
  5. HYDROCODONE [Concomitant]
     Indication: PAIN
     Dosage: 5/500 MG Q6H PRN
  6. AGGRENOX [Concomitant]
     Indication: PRODUCT USED FOR UNKNOWN INDICATION
  7. HUMIRA [Suspect]
     Indication: RHEUMATOID ARTHRITIS
     Dates: start: 20110202
  8. PREDNISONE [Concomitant]
     Indication: PRODUCT USED FOR UNKNOWN INDICATION
  9. LOSARTAN POTASSIUM [Concomitant]
     Indication: PRODUCT USED FOR UNKNOWN INDICATION
  10. METHOTREXATE [Concomitant]
     Indication: PRODUCT USED FOR UNKNOWN INDICATION
     Dosage: 20MG WEEKLY
     Route: 048
     Dates: start: 20050101, end: 20110416
  11. SERTRALINE [Concomitant]
     Indication: PRODUCT USED FOR UNKNOWN INDICATION

REACTIONS (16)
  - PAIN [None]
  - DIZZINESS [None]
  - GAIT DISTURBANCE [None]
  - ASTHENIA [None]
  - MACULAR HOLE [None]
  - COUGH [None]
  - NIGHT SWEATS [None]
  - DYSARTHRIA [None]
  - FATIGUE [None]
  - MOBILITY DECREASED [None]
  - INFLUENZA LIKE ILLNESS [None]
  - MUSCLE SPASMS [None]
  - HYPOAESTHESIA FACIAL [None]
  - PYREXIA [None]
  - HYPOAESTHESIA [None]
  - MYALGIA [None]
